FAERS Safety Report 4719437-6 (Version None)
Quarter: 2005Q3

REPORT INFORMATION
  Report Type: 
  Country: None (occurrence: None)
  Receive Date: 20050721
  Receipt Date: 20041220
  Transmission Date: 20060218
  Serious: Yes (Other)
  Sender: FDA-Public Use
  Company Number: PHEH2004US13544

PATIENT
  Age: 89 Year
  Sex: Female

DRUGS (10)
  1. CELEBREX [Suspect]
  2. AREDIA [Suspect]
     Indication: OSTEOPOROSIS
     Dosage: 30MG OVER 2HRS IN 250CCNS
     Route: 042
     Dates: start: 20040503, end: 20041101
  3. LIPITOR [Concomitant]
     Dosage: 5 MG, UNK
  4. VOLTAREN [Concomitant]
     Dosage: 50 MG, UNK
  5. XANAX [Concomitant]
     Dosage: 12 MG, UNK
  6. VITAMINS [Concomitant]
  7. COENZYME Q10 [Concomitant]
  8. AMINO ACIDS NOS [Concomitant]
  9. FLONASE [Concomitant]
  10. REFRESH [Concomitant]

REACTIONS (22)
  - BLINDNESS UNILATERAL [None]
  - BLOOD PRESSURE INCREASED [None]
  - CONDITION AGGRAVATED [None]
  - DIPLOPIA [None]
  - EYE IRRITATION [None]
  - EYE PAIN [None]
  - INJECTION SITE PAIN [None]
  - INJECTION SITE REACTION [None]
  - NAUSEA [None]
  - OPTIC ISCHAEMIC NEUROPATHY [None]
  - PAIN [None]
  - PYREXIA [None]
  - RASH [None]
  - RASH MACULAR [None]
  - RASH PRURITIC [None]
  - RASH PUSTULAR [None]
  - SKIN BURNING SENSATION [None]
  - SWOLLEN TONGUE [None]
  - URINARY RETENTION [None]
  - VISUAL ACUITY REDUCED [None]
  - VISUAL DISTURBANCE [None]
  - VISUAL FIELD DEFECT [None]
